FAERS Safety Report 7936121-6 (Version None)
Quarter: 2011Q4

REPORT INFORMATION
  Report Type: 
  Country: None (occurrence: None)
  Receive Date: 20111123
  Receipt Date: 20111116
  Transmission Date: 20120403
  Serious: Yes (Hospitalization)
  Sender: FDA-Public Use
  Company Number: US-BRISTOL-MYERS SQUIBB COMPANY-16163867

PATIENT
  Age: 61 Year
  Sex: Male

DRUGS (10)
  1. BLINDED: SAXAGLIPTIN [Suspect]
     Indication: TYPE 2 DIABETES MELLITUS
     Dosage: INTERRUPTED ON 07OCT11
     Dates: start: 20100921
  2. METFORMIN HCL [Suspect]
     Indication: TYPE 2 DIABETES MELLITUS
  3. NAPROXEN [Suspect]
  4. EZETIMIBE [Concomitant]
  5. HYDROCHLOROTHIAZIDE [Suspect]
  6. GLIPIZIDE [Suspect]
     Indication: TYPE 2 DIABETES MELLITUS
  7. BLINDED: PLACEBO [Suspect]
     Indication: TYPE 2 DIABETES MELLITUS
     Dates: start: 20100910
  8. LISINOPRIL [Suspect]
  9. ASPIRIN [Concomitant]
     Dosage: 1DF={ 100 MG
  10. LANTUS [Suspect]
     Indication: TYPE 2 DIABETES MELLITUS

REACTIONS (2)
  - PANCREATITIS [None]
  - DUODENAL ULCER PERFORATION [None]
